FAERS Safety Report 4717436-1 (Version None)
Quarter: 2005Q3

REPORT INFORMATION
  Report Type: 
  Country: None (occurrence: None)
  Receive Date: 20050719
  Receipt Date: 20030605
  Transmission Date: 20060218
  Serious: Yes (Death, Life-Threatening, Hospitalization, Disabling, Other)
  Sender: FDA-Public Use
  Company Number: US-MERCK-0306USA00762

PATIENT
  Sex: Male

DRUGS (19)
  1. VIOXX [Suspect]
     Route: 048
     Dates: start: 19991208, end: 20000315
  2. VIOXX [Suspect]
     Route: 048
     Dates: start: 19991101, end: 19991208
  3. VIOXX [Suspect]
     Route: 048
     Dates: start: 20000315, end: 20010104
  4. ALLOPURINOL [Concomitant]
     Route: 065
  5. PEPCID [Concomitant]
     Route: 065
  6. FLONASE [Concomitant]
     Route: 065
  7. MICRONASE [Concomitant]
     Route: 065
  8. LACTULOSE [Concomitant]
     Route: 065
  9. CARBIDOPA AND LEVODOPA [Concomitant]
     Route: 065
  10. PROBENECID [Concomitant]
     Route: 065
  11. QUININE SULFATE [Concomitant]
     Route: 065
  12. SELEGILINE [Concomitant]
     Route: 065
  13. TRAMADOL HYDROCHLORIDE [Concomitant]
     Route: 065
  14. BISACODYL [Concomitant]
     Route: 065
  15. COMPAZINE [Concomitant]
     Route: 065
  16. MYLANTA + MYLANTA DS [Concomitant]
     Route: 065
  17. ATENOLOL [Concomitant]
     Route: 065
  18. CHLORTHALIDONE [Concomitant]
     Route: 065
  19. DARVOCET-N 100 [Concomitant]
     Route: 065

REACTIONS (28)
  - ANGINA PECTORIS [None]
  - AORTIC VALVE STENOSIS [None]
  - BLOOD GLUCOSE DECREASED [None]
  - BLOOD PRESSURE INCREASED [None]
  - CACHEXIA [None]
  - CARDIAC FAILURE CONGESTIVE [None]
  - CEREBROVASCULAR ACCIDENT [None]
  - CHEST DISCOMFORT [None]
  - CHEST PAIN [None]
  - CONVULSION [None]
  - CORONARY ARTERY DISEASE [None]
  - DEATH [None]
  - DECUBITUS ULCER [None]
  - DEHYDRATION [None]
  - FALL [None]
  - GASTROENTERITIS VIRAL [None]
  - HOSPITALISATION [None]
  - HYPOGLYCAEMIA [None]
  - MULTIPLE SYSTEM ATROPHY [None]
  - MYOCARDIAL ISCHAEMIA [None]
  - PULMONARY OEDEMA [None]
  - RED BLOOD CELL COUNT DECREASED [None]
  - RENAL FAILURE [None]
  - STAPHYLOCOCCAL SEPSIS [None]
  - SYNCOPE [None]
  - TOOTH FRACTURE [None]
  - URINARY TRACT INFECTION [None]
  - WOUND INFECTION STAPHYLOCOCCAL [None]
